FAERS Safety Report 8956334 (Version 1)
Quarter: 2012Q4

REPORT INFORMATION
  Report Type: 
  Country: GB (occurrence: GB)
  Receive Date: 20121210
  Receipt Date: 20121210
  Transmission Date: 20130627
  Serious: Yes (Hospitalization)
  Sender: FDA-Public Use
  Company Number: GB-JNJFOC-20121201877

PATIENT
  Age: 81 Year
  Sex: Male
  Weight: 63.4 kg

DRUGS (8)
  1. IBUPROFEN [Suspect]
     Route: 061
  2. IBUPROFEN [Suspect]
     Indication: ARTHRALGIA
     Dosage: as required
     Route: 061
     Dates: start: 20121106, end: 20121112
  3. ACETYLSALICYLIC ACID [Suspect]
     Indication: ATRIAL FIBRILLATION
     Dosage: in the morning, since long term
     Route: 048
     Dates: end: 20121112
  4. CLEXANE [Suspect]
     Indication: FEMORAL NECK FRACTURE
     Route: 058
     Dates: start: 20120930, end: 20121031
  5. PARACETAMOL [Concomitant]
     Dosage: as necessary
     Route: 065
  6. LAXIDO [Concomitant]
     Dosage: 1-2 dose forms as necessary
     Route: 065
  7. CALCICHEW-D3 [Concomitant]
     Route: 065
  8. FOLIC ACID [Concomitant]

REACTIONS (2)
  - Rectal haemorrhage [Recovering/Resolving]
  - Haemoglobin decreased [Recovering/Resolving]
